FAERS Safety Report 6072368-4 (Version None)
Quarter: 2009Q1

REPORT INFORMATION
  Report Type: 
  Country: None (occurrence: None)
  Receive Date: 20090210
  Receipt Date: 20090203
  Transmission Date: 20090719
  Serious: Yes (Other)
  Sender: FDA-Public Use
  Company Number: PHHY2009AU03821

PATIENT
  Sex: Male
  Weight: 84 kg

DRUGS (1)
  1. EXJADE [Suspect]
     Indication: MYELODYSPLASTIC SYNDROME
     Dosage: 3 X 500 MG
     Dates: start: 20061101

REACTIONS (1)
  - VISUAL ACUITY REDUCED [None]
